FAERS Safety Report 18963890 (Version 1)
Quarter: 2021Q1

REPORT INFORMATION
  Report Type: Spontaneous
  Country: US (occurrence: US)
  Receive Date: 20210303
  Receipt Date: 20210303
  Transmission Date: 20210420
  Serious: No
  Sender: FDA-Public Use
  Company Number: US-AMNEAL PHARMACEUTICALS-2020-AMRX-00086

PATIENT
  Age: 79 Year
  Sex: Male

DRUGS (4)
  1. RYTARY [Suspect]
     Active Substance: CARBIDOPA\LEVODOPA
     Indication: PARKINSON^S DISEASE
     Dosage: FIRST WEEK, 2X/DAY, 2 CAPSULES IN THE MORNING, 2 CAPSULES IN THE EVENING
     Route: 065
     Dates: start: 202001, end: 202001
  2. RYTARY [Suspect]
     Active Substance: CARBIDOPA\LEVODOPA
     Dosage: SECOND WEEK, 2 CAPSULES, 3X/DAY
     Route: 065
     Dates: start: 202001, end: 202002
  3. RYTARY [Suspect]
     Active Substance: CARBIDOPA\LEVODOPA
     Dosage: 36.25/145; 3 CAPSULES, 3 /DAY
     Route: 048
     Dates: start: 202002, end: 2020
  4. RYTARY [Suspect]
     Active Substance: CARBIDOPA\LEVODOPA
     Dosage: 36.25/145; 3 CAPSULES, 2 /DAY
     Route: 048
     Dates: start: 2020

REACTIONS (1)
  - Tremor [Not Recovered/Not Resolved]

NARRATIVE: CASE EVENT DATE: 202001
